FAERS Safety Report 21619027 (Version 2)
Quarter: 2022Q4

REPORT INFORMATION
  Report Type: Spontaneous
  Country: FR (occurrence: FR)
  Receive Date: 20221120
  Receipt Date: 20221129
  Transmission Date: 20230113
  Serious: Yes (Disabling)
  Sender: FDA-Public Use
  Company Number: None

PATIENT
  Age: 46 Year
  Sex: Male

DRUGS (4)
  1. PALIPERIDONE PALMITATE [Suspect]
     Active Substance: PALIPERIDONE PALMITATE
     Indication: Aggression
     Route: 030
     Dates: start: 20211129, end: 20211129
  2. PALIPERIDONE PALMITATE [Suspect]
     Active Substance: PALIPERIDONE PALMITATE
     Dosage: DAY-0
     Route: 030
     Dates: start: 20211101, end: 20211101
  3. PALIPERIDONE PALMITATE [Suspect]
     Active Substance: PALIPERIDONE PALMITATE
     Dosage: DAY-8
     Route: 030
     Dates: start: 20211108, end: 20211108
  4. RISPERIDONE [Concomitant]
     Active Substance: RISPERIDONE
     Indication: Aggression
     Route: 048
     Dates: start: 20211101, end: 20211115

REACTIONS (4)
  - Abulia [Not Recovered/Not Resolved]
  - Dysphagia [Not Recovered/Not Resolved]
  - Apathy [Not Recovered/Not Resolved]
  - Incorrect dosage administered [Not Recovered/Not Resolved]

NARRATIVE: CASE EVENT DATE: 20211101
